FAERS Safety Report 23500100 (Version 1)
Quarter: 2024Q1

REPORT INFORMATION
  Report Type: Spontaneous
  Country: BR (occurrence: BR)
  Receive Date: 20240208
  Receipt Date: 20240208
  Transmission Date: 20240409
  Serious: Yes (Other)
  Sender: FDA-Public Use
  Company Number: BR-002147023-NVSC2024BR027232

PATIENT
  Sex: Male

DRUGS (1)
  1. TEGRETOL XR [Suspect]
     Active Substance: CARBAMAZEPINE
     Indication: Product used for unknown indication
     Dosage: 400 MG, TID
     Route: 065

REACTIONS (2)
  - Epilepsy [Unknown]
  - Syncope [Unknown]
